FAERS Safety Report 4679314-6 (Version None)
Quarter: 2005Q2

REPORT INFORMATION
  Report Type: 
  Country: None (occurrence: None)
  Receive Date: 20050602
  Receipt Date: 20050526
  Transmission Date: 20051028
  Serious: Yes (Hospitalization)
  Sender: FDA-Public Use
  Company Number: US-BRISTOL-MYERS SQUIBB COMPANY-12985099

PATIENT
  Age: 75 Year
  Sex: Female
  Weight: 47 kg

DRUGS (2)
  1. CETUXIMAB [Suspect]
     Indication: PANCREATIC CARCINOMA
     Dosage: START DATE 1ST COURSE 15-DEC-04. GIVEN DAYS 1,8,15+22 EVERY 28 DAYS. START DATE COURSE 22:11-MAY-05.
     Route: 042
     Dates: start: 20050518, end: 20050518
  2. GEMCITABINE [Suspect]
     Indication: PANCREATIC CARCINOMA
     Dosage: START DATE COURSE 1: 15-DEC-04. GIVEN DAYS 1,8,15 EVERY 28 DAYS. START DATE COURSE 22:11-MAY-05.
     Route: 042
     Dates: start: 20050518, end: 20050518

REACTIONS (7)
  - BLOOD CREATININE INCREASED [None]
  - FATIGUE [None]
  - HAEMOGLOBIN DECREASED [None]
  - HYPERKALAEMIA [None]
  - RENAL FAILURE [None]
  - SINUS BRADYCARDIA [None]
  - TROPONIN T INCREASED [None]
